FAERS Safety Report 8875910 (Version 3)
Quarter: 2013Q1

REPORT INFORMATION
  Report Type: Spontaneous
  Country: US (occurrence: US)
  Receive Date: 20121023
  Receipt Date: 20130222
  Transmission Date: 20140127
  Serious: Yes (Hospitalization)
  Sender: FDA-Public Use
  Company Number: US-GLAXOSMITHKLINE-A0997545A

PATIENT
  Age: 9 Year
  Sex: Male

DRUGS (4)
  1. FLOVENT [Suspect]
     Indication: ASTHMA
     Dosage: 2PUFF TWICE PER DAY
     Route: 055
     Dates: start: 201002, end: 20121012
  2. NASACORT [Concomitant]
  3. NASONEX [Concomitant]
  4. HYDROCORTISONE [Concomitant]

REACTIONS (21)
  - Adrenal suppression [Not Recovered/Not Resolved]
  - Adrenocortical insufficiency acute [Not Recovered/Not Resolved]
  - Growth retardation [Not Recovered/Not Resolved]
  - Abasia [Not Recovered/Not Resolved]
  - Syncope [Not Recovered/Not Resolved]
  - Dehydration [Not Recovered/Not Resolved]
  - Disorientation [Not Recovered/Not Resolved]
  - Headache [Not Recovered/Not Resolved]
  - Influenza like illness [Not Recovered/Not Resolved]
  - Weight decreased [Not Recovered/Not Resolved]
  - Decreased appetite [Not Recovered/Not Resolved]
  - Asthenia [Not Recovered/Not Resolved]
  - Blood cortisol decreased [Not Recovered/Not Resolved]
  - Malaise [Not Recovered/Not Resolved]
  - Influenza virus test positive [Not Recovered/Not Resolved]
  - Nausea [Unknown]
  - Vomiting [Unknown]
  - Pyrexia [Unknown]
  - Mental status changes [Unknown]
  - Hyponatraemia [Unknown]
  - Hyperkalaemia [Unknown]
